FAERS Safety Report 5478804-6 (Version None)
Quarter: 2007Q4

REPORT INFORMATION
  Report Type: 
  Country: None (occurrence: None)
  Receive Date: 20071005
  Receipt Date: 20070928
  Transmission Date: 20080405
  Serious: Yes (Hospitalization)
  Sender: FDA-Public Use
  Company Number: HU-GENENTECH-248600

PATIENT
  Sex: Male
  Weight: 108 kg

DRUGS (1)
  1. RITUXIMAB [Suspect]
     Indication: B-CELL LYMPHOMA
     Dosage: 375 MG/M2, 8/WEEK
     Route: 042
     Dates: start: 20070314

REACTIONS (2)
  - FEBRILE NEUTROPENIA [None]
  - SEPSIS [None]
